FAERS Safety Report 7408790-0 (Version None)
Quarter: 2011Q2

REPORT INFORMATION
  Report Type: 
  Country: None (occurrence: None)
  Receive Date: 20110412
  Receipt Date: 20110404
  Transmission Date: 20111010
  Serious: Yes (Hospitalization)
  Sender: FDA-Public Use
  Company Number: US-AMGEN-KDC439707

PATIENT
  Sex: Female
  Weight: 2.92 kg

DRUGS (22)
  1. ETANERCEPT [Suspect]
     Dosage: 50 MG, QWK
     Route: 064
     Dates: start: 20080824, end: 20080928
  2. TUMS [Concomitant]
     Dosage: UNK UNK, UNK
     Route: 064
     Dates: start: 20090327, end: 20090527
  3. ETANERCEPT [Suspect]
     Indication: RHEUMATOID ARTHRITIS
     Dosage: 50 MG, QWK
     Route: 064
     Dates: start: 20080824, end: 20080928
  4. FATTY ACID [Concomitant]
     Dosage: 400 MG, QD
     Route: 064
     Dates: start: 20080930, end: 20090527
  5. ERGOCALCIFEROL [Concomitant]
     Dosage: UNK UNK, UNK
     Route: 064
     Dates: start: 20080824, end: 20090123
  6. UNSPECIFIED ANTI-INFECTIVE AGENT [Concomitant]
     Dosage: UNK UNK, QD
     Route: 064
     Dates: start: 20090401, end: 20090405
  7. PLAQUENIL [Concomitant]
     Dosage: UNK UNK, QD
     Route: 064
     Dates: start: 20080824, end: 20090527
  8. CALCIUM [Concomitant]
     Dosage: UNK UNK, UNK
     Route: 064
     Dates: start: 20080824, end: 20080930
  9. DIPHENHYDRAMINE HYDROCHLORIDE [Concomitant]
     Dosage: UNK UNK, QD
     Route: 064
     Dates: start: 20090308, end: 20090315
  10. CLINDAMYCIN [Concomitant]
     Dosage: 1200 MG, QD
     Route: 064
     Dates: start: 20090424, end: 20090430
  11. PRENATAL VITAMINS [Concomitant]
     Dosage: UNK UNK, QD
     Route: 064
     Dates: start: 20080930, end: 20090527
  12. IBUPROFEN [Concomitant]
     Dosage: 600 MG, UNK
     Route: 064
     Dates: start: 20080824, end: 20080930
  13. METOPROLOL TARTRATE [Concomitant]
     Dosage: 25 MG, QD
     Route: 064
     Dates: start: 20081106, end: 20081201
  14. ACETAMINOPHEN [Concomitant]
     Dosage: UNK UNK, QD
     Route: 064
     Dates: start: 20081013, end: 20090527
  15. LEVOTHYROXINE SODIUM [Concomitant]
     Dosage: 100 MG, QD
     Route: 064
     Dates: start: 20081202, end: 20090527
  16. INFLUENZA VACCINE [Concomitant]
     Dosage: UNK UNK, QD
     Route: 064
     Dates: start: 20081020, end: 20081020
  17. NITROFURANTOIN (MONOHYDRATE/MACROCRYSTALS) [Concomitant]
     Dosage: 200 MG, QD
     Route: 064
     Dates: start: 20090409, end: 20090414
  18. METFORMIN HYDROCHLORIDE [Concomitant]
     Dosage: 2000 MG, QD
     Route: 064
     Dates: start: 20080824, end: 20081028
  19. MOMETASONE FUROATE [Concomitant]
     Dosage: UNK UNK, PRN
     Route: 064
     Dates: start: 20080824, end: 20081020
  20. BUDESONIDE [Concomitant]
     Dosage: UNK UNK, PRN
     Route: 064
     Dates: start: 20081021, end: 20081107
  21. LOVAZA [Concomitant]
     Dosage: 400 MG, QD
     Route: 064
     Dates: start: 20080930, end: 20090527
  22. FEXOFENADINE HCL [Concomitant]
     Dosage: UNK UNK, PRN
     Route: 064
     Dates: start: 20080824, end: 20080930

REACTIONS (4)
  - GASTROOESOPHAGEAL REFLUX DISEASE [None]
  - SEPSIS NEONATAL [None]
  - FEBRILE INFECTION [None]
  - MYOSITIS [None]
